FAERS Safety Report 7460559-7 (Version None)
Quarter: 2011Q2

REPORT INFORMATION
  Report Type: 
  Country: None (occurrence: None)
  Receive Date: 20110505
  Receipt Date: 20110429
  Transmission Date: 20111010
  Serious: Yes (Hospitalization)
  Sender: FDA-Public Use
  Company Number: FR-GENENTECH-317932

PATIENT
  Sex: Male

DRUGS (3)
  1. FLUDARABINE [Suspect]
     Indication: B-CELL SMALL LYMPHOCYTIC LYMPHOMA
     Dosage: UNK
     Route: 002
     Dates: start: 20101215, end: 20101217
  2. RITUXIMAB [Suspect]
     Indication: B-CELL SMALL LYMPHOCYTIC LYMPHOMA
     Dosage: UNK
     Route: 041
     Dates: start: 20101214
  3. CYCLOPHOSPHAMIDE [Suspect]
     Indication: B-CELL SMALL LYMPHOCYTIC LYMPHOMA
     Dosage: UNK
     Route: 002
     Dates: start: 20101215, end: 20101217

REACTIONS (2)
  - TUMOUR LYSIS SYNDROME [None]
  - GENERAL PHYSICAL HEALTH DETERIORATION [None]
